FAERS Safety Report 4822158-2 (Version None)
Quarter: 2005Q4

REPORT INFORMATION
  Report Type: 
  Country: None (occurrence: None)
  Receive Date: 20051103
  Receipt Date: 20051017
  Transmission Date: 20060501
  Serious: Yes (Disabling)
  Sender: FDA-Public Use
  Company Number: GBS051018661

PATIENT
  Age: 43 Year
  Sex: Male

DRUGS (3)
  1. FLUOXETINE [Suspect]
     Indication: ANXIETY
     Route: 048
  2. FLUPENTIXOL [Concomitant]
  3. FERROUS SULFATE TAB [Concomitant]

REACTIONS (1)
  - CORNEAL DEPOSITS [None]
